FAERS Safety Report 11883694 (Version 2)
Quarter: 2018Q3

REPORT INFORMATION
  Report Type: Spontaneous
  Country: US (occurrence: US)
  Receive Date: 20160101
  Receipt Date: 20180712
  Transmission Date: 20181010
  Serious: No
  Sender: FDA-Public Use
  Company Number: US-ASTRAZENECA-2007BM12509

PATIENT
  Age: 68 Year
  Sex: Female
  Weight: 59.9 kg

DRUGS (11)
  1. BYETTA [Suspect]
     Active Substance: EXENATIDE
     Indication: TYPE 2 DIABETES MELLITUS
     Route: 058
  2. BYETTA [Suspect]
     Active Substance: EXENATIDE
     Indication: TYPE 2 DIABETES MELLITUS
     Route: 058
     Dates: start: 200509, end: 200510
  3. BYETTA [Suspect]
     Active Substance: EXENATIDE
     Indication: TYPE 2 DIABETES MELLITUS
     Route: 058
     Dates: start: 200510, end: 200611
  4. BYETTA [Suspect]
     Active Substance: EXENATIDE
     Indication: TYPE 2 DIABETES MELLITUS
     Dosage: 2.4 ML
     Route: 058
     Dates: start: 2005
  5. INSULIN [Concomitant]
     Active Substance: INSULIN NOS
     Indication: TYPE 2 DIABETES MELLITUS
     Dates: end: 200509
  6. BYETTA [Suspect]
     Active Substance: EXENATIDE
     Indication: TYPE 2 DIABETES MELLITUS
     Route: 058
     Dates: start: 200511
  7. BYETTA [Suspect]
     Active Substance: EXENATIDE
     Indication: TYPE 2 DIABETES MELLITUS
     Route: 058
     Dates: start: 200511
  8. BYETTA [Suspect]
     Active Substance: EXENATIDE
     Indication: TYPE 2 DIABETES MELLITUS
     Route: 058
     Dates: start: 200609
  9. METFORMIN [Concomitant]
     Active Substance: METFORMIN HYDROCHLORIDE
  10. BYDUREON [Suspect]
     Active Substance: EXENATIDE
     Route: 065
  11. GLUCOPHAGE [Concomitant]
     Active Substance: METFORMIN HYDROCHLORIDE
     Indication: DIABETES MELLITUS
     Dosage: UNK UNK, BID

REACTIONS (23)
  - Dysgeusia [Not Recovered/Not Resolved]
  - Nausea [Unknown]
  - Rhinorrhoea [Unknown]
  - Sneezing [Unknown]
  - Weight increased [Unknown]
  - Overdose [Unknown]
  - Blood glucose increased [Recovering/Resolving]
  - Decreased appetite [Not Recovered/Not Resolved]
  - Alopecia [Not Recovered/Not Resolved]
  - Product quality issue [Unknown]
  - Fatigue [Not Recovered/Not Resolved]
  - Abdominal distension [Unknown]
  - Gastrointestinal disorder [Recovered/Resolved]
  - Hunger [Unknown]
  - Diarrhoea [Recovering/Resolving]
  - Flatulence [Recovering/Resolving]
  - Vomiting [Unknown]
  - Thyroid mass [Unknown]
  - Intentional product misuse [Unknown]
  - Therapeutic response unexpected [Recovered/Resolved]
  - Weight decreased [Unknown]
  - Blood glucose decreased [Unknown]
  - Dysgeusia [Not Recovered/Not Resolved]

NARRATIVE: CASE EVENT DATE: 20050915
